FAERS Safety Report 5361007-3 (Version None)
Quarter: 2007Q2

REPORT INFORMATION
  Report Type: 
  Country: None (occurrence: None)
  Receive Date: 20070530
  Receipt Date: 20070326
  Transmission Date: 20071010
  Serious: No
  Sender: FDA-Public Use
  Company Number: 2007PV032371

PATIENT
  Age: 58 Year
  Sex: Female
  Weight: 102.0593 kg

DRUGS (3)
  1. BYETTA [Suspect]
     Indication: DIABETES MELLITUS NON-INSULIN-DEPENDENT
     Dosage: 5 MCG;BID;SC
     Route: 058
     Dates: start: 20070301
  2. ACTOS [Concomitant]
  3. MINOCYCLINE HCL [Concomitant]

REACTIONS (3)
  - CONSTIPATION [None]
  - RASH PUSTULAR [None]
  - WEIGHT DECREASED [None]
